FAERS Safety Report 23153686 (Version 1)
Quarter: 2023Q4

REPORT INFORMATION
  Report Type: Spontaneous
  Country: US (occurrence: US)
  Receive Date: 20231107
  Receipt Date: 20231107
  Transmission Date: 20240110
  Serious: Yes (Hospitalization)
  Sender: FDA-Public Use
  Company Number: US-RISINGPHARMA-US-2023RISSPO00162

PATIENT
  Age: 3 Decade
  Sex: Female

DRUGS (8)
  1. PREDNISONE [Suspect]
     Active Substance: PREDNISONE
     Indication: Pericarditis
     Route: 048
  2. PREDNISONE [Suspect]
     Active Substance: PREDNISONE
     Route: 048
  3. IBUPROFEN [Suspect]
     Active Substance: IBUPROFEN
     Indication: Pericarditis
     Route: 065
  4. NIFEDIPINE [Suspect]
     Active Substance: NIFEDIPINE
     Indication: Pre-eclampsia
     Route: 065
  5. ANAKINRA [Concomitant]
     Active Substance: ANAKINRA
     Route: 065
  6. ANAKINRA [Concomitant]
     Active Substance: ANAKINRA
     Dosage: 2-4 INJECTIONS OF 100 MG PER WEEK
     Route: 065
  7. ANAKINRA [Concomitant]
     Active Substance: ANAKINRA
     Route: 065
  8. COLCHICINE [Concomitant]
     Active Substance: COLCHICINE
     Route: 065

REACTIONS (5)
  - Preterm premature rupture of membranes [Unknown]
  - Maternal exposure during pregnancy [Unknown]
  - Treatment failure [Unknown]
  - Insomnia [Unknown]
  - Mood altered [Unknown]
